FAERS Safety Report 6279839-6 (Version None)
Quarter: 2009Q3

REPORT INFORMATION
  Report Type: 
  Country: None (occurrence: None)
  Receive Date: 20090723
  Receipt Date: 20090714
  Transmission Date: 20100115
  Serious: Yes (Other)
  Sender: FDA-Public Use
  Company Number: PHEH2009US07503

PATIENT
  Sex: Male

DRUGS (1)
  1. EXJADE [Suspect]
     Dosage: 1000 MG DAILY
     Route: 048

REACTIONS (2)
  - ACUTE LEUKAEMIA [None]
  - GASTROINTESTINAL DISORDER [None]
